FAERS Safety Report 7754177-0 (Version None)
Quarter: 2011Q3

REPORT INFORMATION
  Report Type: 
  Country: None (occurrence: None)
  Receive Date: 20110913
  Receipt Date: 20110830
  Transmission Date: 20111222
  Serious: Yes (Hospitalization, Other)
  Sender: FDA-Public Use
  Company Number: 2011P1008614

PATIENT
  Sex: Female

DRUGS (1)
  1. FENTANYL-75 [Suspect]

REACTIONS (2)
  - SOMNOLENCE [None]
  - SURGERY [None]
